FAERS Safety Report 9123559 (Version 1)
Quarter: 2013Q1

REPORT INFORMATION
  Report Type: Spontaneous
  Country: US (occurrence: US)
  Receive Date: 20130115
  Receipt Date: 20130115
  Transmission Date: 20140127
  Serious: Yes (Other)
  Sender: FDA-Public Use
  Company Number: US-PFIZER INC-2013011253

PATIENT
  Sex: Male

DRUGS (2)
  1. VIAGRA [Suspect]
     Dosage: UNK
  2. NITROGLYCERIN [Suspect]
     Dosage: UNK

REACTIONS (5)
  - Off label use [Unknown]
  - Chest pain [Unknown]
  - Chest discomfort [Unknown]
  - Chest discomfort [Unknown]
  - Dyspnoea [Unknown]
